FAERS Safety Report 12097308 (Version 1)
Quarter: 2016Q1

REPORT INFORMATION
  Report Type: Other
  Country: US (occurrence: US)
  Receive Date: 20160221
  Receipt Date: 20160221
  Transmission Date: 20160526
  Serious: No
  Sender: FDA-Public Use
  Company Number: US-ACORDA-ACO_110792_2015

PATIENT
  Sex: Male

DRUGS (2)
  1. AMPYRA [Suspect]
     Active Substance: DALFAMPRIDINE
     Indication: PROGRESSIVE RELAPSING MULTIPLE SCLEROSIS
     Dosage: 10 MG, BID
     Route: 048
     Dates: start: 20140115
  2. AMPYRA [Suspect]
     Active Substance: DALFAMPRIDINE
     Dosage: 10 MG, BID
     Route: 048

REACTIONS (5)
  - Condition aggravated [Unknown]
  - Gait disturbance [Unknown]
  - Therapeutic response unexpected [Unknown]
  - Multiple sclerosis relapse [Recovering/Resolving]
  - Therapy cessation [Recovered/Resolved]
